FAERS Safety Report 5519970-3 (Version None)
Quarter: 2007Q4

REPORT INFORMATION
  Report Type: 
  Country: None (occurrence: None)
  Receive Date: 20071116
  Receipt Date: 20070126
  Transmission Date: 20080405
  Serious: No
  Sender: FDA-Public Use
  Company Number: US-BRISTOL-MYERS SQUIBB COMPANY-13664321

PATIENT
  Sex: Female

DRUGS (2)
  1. QUESTRAN [Suspect]
     Indication: DIARRHOEA
     Route: 048
     Dates: start: 20061214
  2. THYROID TAB [Concomitant]

REACTIONS (1)
  - HYPOTHYROIDISM [None]
